FAERS Safety Report 9338634 (Version 1)
Quarter: 2013Q2

REPORT INFORMATION
  Report Type: Spontaneous
  Country: CA (occurrence: CA)
  Receive Date: 20130610
  Receipt Date: 20130610
  Transmission Date: 20140414
  Serious: Yes (Death)
  Sender: FDA-Public Use
  Company Number: CA-AMGEN-CANSP2013039816

PATIENT
  Age: 80 Year
  Sex: Male

DRUGS (1)
  1. XGEVA [Suspect]
     Indication: NEOPLASM MALIGNANT

REACTIONS (1)
  - Neoplasm malignant [Fatal]
